FAERS Safety Report 20562066 (Version 5)
Quarter: 2023Q1

REPORT INFORMATION
  Report Type: Spontaneous
  Country: PL (occurrence: PL)
  Receive Date: 20220307
  Receipt Date: 20230207
  Transmission Date: 20230417
  Serious: Yes (Other)
  Sender: FDA-Public Use
  Company Number: PL-SA-2022SA063786

PATIENT
  Age: 42 Year
  Sex: Male

DRUGS (5)
  1. ARIPIPRAZOLE [Suspect]
     Active Substance: ARIPIPRAZOLE
     Indication: Schizophrenia
     Dosage: UNK, DECIDED THAT THE ORAL FORM
     Route: 048
     Dates: start: 2015
  2. ARIPIPRAZOLE [Suspect]
     Active Substance: ARIPIPRAZOLE
     Dosage: 15 MG
     Route: 048
  3. ARIPIPRAZOLE [Suspect]
     Active Substance: ARIPIPRAZOLE
     Indication: Schizophrenia
     Dosage: 15 MG, INITIALLY, HE TOOK THE FORM
     Route: 042
     Dates: start: 2015
  4. AMANTADINE [Suspect]
     Active Substance: AMANTADINE
     Indication: Libido decreased
     Dosage: 100 MG, QD (IN THE EVENING)
     Route: 065
  5. AMANTADINE [Suspect]
     Active Substance: AMANTADINE
     Indication: Sexual dysfunction

REACTIONS (4)
  - Male sexual dysfunction [Recovered/Resolved]
  - Sexual dysfunction [Recovering/Resolving]
  - Libido decreased [Recovered/Resolved]
  - Erectile dysfunction [Recovering/Resolving]

NARRATIVE: CASE EVENT DATE: 20170101
